FAERS Safety Report 19026219 (Version 1)
Quarter: 2021Q1

REPORT INFORMATION
  Report Type: Spontaneous
  Country: US (occurrence: US)
  Receive Date: 20210318
  Receipt Date: 20210318
  Transmission Date: 20210420
  Serious: Yes (Disabling, Other)
  Sender: FDA-Public Use
  Company Number: US-HIKMA PHARMACEUTICALS USA INC.-US-H14001-21-01047

PATIENT
  Age: 75 Year
  Sex: Female
  Weight: 102.06 kg

DRUGS (3)
  1. METHOTREXATE. [Suspect]
     Active Substance: METHOTREXATE
     Indication: ARTHRITIS
     Dosage: UNKNOWN
     Route: 065
  2. METHOTREXATE. [Suspect]
     Active Substance: METHOTREXATE
     Indication: ARTHRITIS
     Route: 048
  3. PFIZER?BIONTECH COVID?19 VACCINE [Suspect]
     Active Substance: TOZINAMERAN
     Indication: COVID-19 IMMUNISATION
     Dosage: UNKNOWN
     Route: 065

REACTIONS (21)
  - Inflammation [Unknown]
  - Wheezing [Unknown]
  - Heart rate decreased [Unknown]
  - Pain [Unknown]
  - Peak expiratory flow rate decreased [Unknown]
  - Arthralgia [Recovering/Resolving]
  - Dyspnoea [Recovering/Resolving]
  - Nausea [Recovered/Resolved]
  - C-reactive protein increased [Unknown]
  - Asthma [Unknown]
  - Pyrexia [Recovered/Resolved]
  - Eye pain [Recovered/Resolved]
  - Shoulder arthroplasty [Unknown]
  - Heart rate increased [Recovering/Resolving]
  - Decreased appetite [Recovered/Resolved]
  - Pneumonia [Unknown]
  - Feeling abnormal [Unknown]
  - Oral pruritus [Recovered/Resolved]
  - Myalgia [Recovered/Resolved]
  - Pruritus [Recovered/Resolved]
  - Joint arthroplasty [Unknown]

NARRATIVE: CASE EVENT DATE: 20210211
